FAERS Safety Report 21462651 (Version 3)
Quarter: 2022Q4

REPORT INFORMATION
  Report Type: Report from Study
  Country: US (occurrence: US)
  Receive Date: 20221017
  Receipt Date: 20221206
  Transmission Date: 20230113
  Serious: No
  Sender: FDA-Public Use
  Company Number: US-ACADIA PHARMACEUTICALS INC.-ACA-2022-PIM-003249

PATIENT
  Age: 86 Year
  Sex: Male

DRUGS (3)
  1. NUPLAZID [Suspect]
     Active Substance: PIMAVANSERIN TARTRATE
     Indication: Parkinson^s disease psychosis
     Dosage: 10 MILLIGRAM, QD
     Route: 065
  2. NUPLAZID [Suspect]
     Active Substance: PIMAVANSERIN TARTRATE
     Indication: Parkinson^s disease psychosis
     Dosage: 34 MILLIGRAM, QD
     Route: 065
     Dates: start: 20220919
  3. SINEMET [Concomitant]
     Active Substance: CARBIDOPA\LEVODOPA

REACTIONS (9)
  - Injury [Unknown]
  - Pain [Unknown]
  - Mobility decreased [Unknown]
  - Skin laceration [Unknown]
  - Contusion [Unknown]
  - Product dose omission issue [Not Recovered/Not Resolved]
  - Visual impairment [Not Recovered/Not Resolved]
  - Fall [Unknown]
  - Somnolence [Unknown]

NARRATIVE: CASE EVENT DATE: 20221018
